FAERS Safety Report 8586664 (Version 4)
Quarter: 2012Q4

REPORT INFORMATION
  Report Type: Spontaneous
  Country: US (occurrence: None)
  Receive Date: 20120523
  Receipt Date: 20120928
  Transmission Date: 20130627
  Serious: Yes (Other)
  Sender: FDA-Public Use
  Company Number: ADR-2012-00927

PATIENT
  Sex: Male

DRUGS (2)
  1. LIORESAL [Suspect]
     Indication: MUSCLE SPASTICITY
  2. LIORESAL [Suspect]
     Indication: CEREBRAL PALSY

REACTIONS (7)
  - Device breakage [None]
  - Device dislocation [None]
  - Feeling cold [None]
  - Burning sensation [None]
  - Incorrect dose administered [None]
  - Drug effect decreased [None]
  - Implant site effusion [None]
